FAERS Safety Report 6225077-2 (Version None)
Quarter: 2009Q2

REPORT INFORMATION
  Report Type: 
  Country: None (occurrence: None)
  Receive Date: 20090612
  Receipt Date: 20090403
  Transmission Date: 20091009
  Serious: No
  Sender: FDA-Public Use
  Company Number: US-ABBOTT-09P-163-0566784-00

PATIENT
  Sex: Female
  Weight: 65.83 kg

DRUGS (4)
  1. HUMIRA [Suspect]
     Indication: RHEUMATOID ARTHRITIS
     Route: 058
     Dates: start: 20090215
  2. PRILOSEC [Concomitant]
     Indication: DYSPEPSIA
  3. CLARITIN-D [Concomitant]
     Indication: HYPERSENSITIVITY
     Dosage: AS NEEDED
  4. CLARITIN-D [Concomitant]

REACTIONS (4)
  - ARTHRALGIA [None]
  - ARTHRITIS [None]
  - INJECTION SITE PAIN [None]
  - JOINT STIFFNESS [None]
